FAERS Safety Report 4543441-4 (Version None)
Quarter: 2005Q1

REPORT INFORMATION
  Report Type: 
  Country: None (occurrence: None)
  Receive Date: 20050103
  Receipt Date: 20041101
  Transmission Date: 20050727
  Serious: Yes (Other)
  Sender: FDA-Public Use
  Company Number: US-MERCK-0411USA00293

PATIENT
  Age: 50 Year
  Sex: Female

DRUGS (10)
  1. VIOXX [Suspect]
     Indication: ARTHRITIS
     Route: 048
     Dates: start: 20000101, end: 20010101
  2. VIOXX [Suspect]
     Route: 048
     Dates: start: 20010101, end: 20040930
  3. HYZAAR [Concomitant]
     Route: 048
  4. POTASSIUM (UNSPECIFIED) [Concomitant]
     Route: 065
  5. THEO-DUR [Concomitant]
     Route: 065
  6. ALLEGRA [Concomitant]
     Route: 065
  7. SINGULAIR [Concomitant]
     Route: 048
  8. SEREVENT [Concomitant]
     Route: 065
  9. PROVENTIL [Concomitant]
     Route: 065
  10. THYROID [Concomitant]
     Route: 065

REACTIONS (1)
  - MYOCARDIAL INFARCTION [None]
